FAERS Safety Report 6966884-8 (Version None)
Quarter: 2010Q3

REPORT INFORMATION
  Report Type: 
  Country: None (occurrence: None)
  Receive Date: 20100906
  Receipt Date: 20100831
  Transmission Date: 20110219
  Serious: Yes (Death, Hospitalization)
  Sender: FDA-Public Use
  Company Number: PHHY2010MX30878

PATIENT
  Sex: Female

DRUGS (1)
  1. FEMARA [Suspect]
     Indication: BREAST CANCER
     Dosage: 1 TABLET (2.5 MG)/DAY
     Route: 048
     Dates: start: 20070301

REACTIONS (6)
  - ANGINA PECTORIS [None]
  - CARDIOPULMONARY FAILURE [None]
  - DIABETIC COMPLICATION [None]
  - GASTROENTERITIS [None]
  - HYPERTENSION [None]
  - MULTI-ORGAN FAILURE [None]
